FAERS Safety Report 12719254 (Version 1)
Quarter: 2016Q3

REPORT INFORMATION
  Report Type: Spontaneous
  Country: CN (occurrence: CN)
  Receive Date: 20160907
  Receipt Date: 20160907
  Transmission Date: 20161109
  Serious: Yes (Other)
  Sender: FDA-Public Use
  Company Number: CN-TAKEDA-2016MPI007721

PATIENT

DRUGS (6)
  1. EPIRUBICIN [Suspect]
     Active Substance: EPIRUBICIN
     Indication: PLASMA CELL MYELOMA
     Dosage: 12 MG/M2, UNK
     Route: 042
  2. DEXAMETHASONE. [Suspect]
     Active Substance: DEXAMETHASONE
     Indication: PLASMA CELL MYELOMA
     Dosage: 20 MG, UNK
     Route: 065
  3. THALIDOMIDE [Suspect]
     Active Substance: THALIDOMIDE
     Indication: PLASMA CELL MYELOMA
     Dosage: 100 MG/M2, UNK
     Route: 048
  4. ONDANSETRON [Concomitant]
     Active Substance: ONDANSETRON
     Indication: ANTIEMETIC SUPPORTIVE CARE
     Dosage: UNK
     Route: 042
  5. VELCADE [Suspect]
     Active Substance: BORTEZOMIB
     Indication: PLASMA CELL MYELOMA
     Dosage: 1 MG/M2, UNK
     Route: 042
  6. GRANULOCYTE COLONY STIMULATING FACTOR [Concomitant]
     Active Substance: GRANULOCYTE COLONY-STIMULATING FACTOR NOS
     Indication: PROPHYLAXIS
     Dosage: 5 MG/KG, QD
     Route: 058

REACTIONS (21)
  - Neuropathy peripheral [Unknown]
  - Bacterial infection [Unknown]
  - Pain in extremity [Unknown]
  - Constipation [Unknown]
  - Thrombocytopenia [Unknown]
  - Infection [Unknown]
  - Electrocardiogram T wave abnormal [Unknown]
  - Decreased appetite [Unknown]
  - Sinus bradycardia [Unknown]
  - Electrocardiogram ST-T segment abnormal [Unknown]
  - Swelling [Unknown]
  - Oedema [Unknown]
  - Hepatic function abnormal [Unknown]
  - Skin lesion [Unknown]
  - Sepsis [Unknown]
  - Rash [Unknown]
  - Herpes zoster [Unknown]
  - Insomnia [Unknown]
  - Neutropenia [Unknown]
  - Asthenia [Unknown]
  - Muscular weakness [Unknown]
